FAERS Safety Report 23061715 (Version 1)
Quarter: 2023Q4

REPORT INFORMATION
  Report Type: Spontaneous
  Country: US (occurrence: US)
  Receive Date: 20231013
  Receipt Date: 20231013
  Transmission Date: 20240110
  Serious: Yes (Life-Threatening, Hospitalization, Other)
  Sender: FDA-Public Use
  Company Number: US-MLMSERVICE-20230925-4563978-1

PATIENT

DRUGS (4)
  1. PREDNISOLONE [Suspect]
     Active Substance: PREDNISOLONE
     Indication: Uveitis
     Dosage: UNK, EYE DROPS
     Route: 047
  2. PREDNISONE [Suspect]
     Active Substance: PREDNISONE
     Indication: Uveitis
     Dosage: 40 MG, QD
     Route: 048
  3. PREDNISONE [Suspect]
     Active Substance: PREDNISONE
     Dosage: 60 MG, QD, INCREASED
     Route: 048
  4. Bictegravir/ Emtricitabine/ Tenofovir/ Alafenamide [Concomitant]
     Indication: HIV infection
     Dosage: UNK, 3MONTHS PRIOR TO PRESENTATION

REACTIONS (4)
  - Disseminated strongyloidiasis [Recovered/Resolved]
  - Bacteraemia [Recovered/Resolved]
  - Meningitis Escherichia [Recovered/Resolved]
  - Strongyloidiasis [Recovered/Resolved]
